FAERS Safety Report 5731823-4 (Version None)
Quarter: 2008Q2

REPORT INFORMATION
  Report Type: 
  Country: None (occurrence: None)
  Receive Date: 20080508
  Receipt Date: 20080501
  Transmission Date: 20081010
  Serious: Yes (Death, Hospitalization)
  Sender: FDA-Public Use
  Company Number: A0725655A

PATIENT
  Age: 53 Year
  Sex: Male
  Weight: 46.8 kg

DRUGS (1)
  1. AVANDIA [Suspect]
     Dosage: 8MG UNKNOWN
     Route: 048

REACTIONS (30)
  - ACIDOSIS [None]
  - ACUTE RESPIRATORY DISTRESS SYNDROME [None]
  - ASTHENIA [None]
  - BREATH SOUNDS ABNORMAL [None]
  - CARDIAC ARREST [None]
  - CARDIO-RESPIRATORY ARREST [None]
  - COUGH [None]
  - DEPRESSED LEVEL OF CONSCIOUSNESS [None]
  - DIABETES MELLITUS INADEQUATE CONTROL [None]
  - DIABETIC KETOACIDOSIS [None]
  - FALL [None]
  - GAIT DISTURBANCE [None]
  - HAEMATEMESIS [None]
  - HAEMATURIA [None]
  - HYPERKALAEMIA [None]
  - HYPONATRAEMIA [None]
  - HYPOPERFUSION [None]
  - HYPOTENSION [None]
  - LUNG INFILTRATION [None]
  - MOUTH HAEMORRHAGE [None]
  - MULTI-ORGAN FAILURE [None]
  - PAIN [None]
  - PANCREATITIS [None]
  - PNEUMONIA [None]
  - RALES [None]
  - RENAL FAILURE ACUTE [None]
  - RESPIRATORY FAILURE [None]
  - SEPSIS [None]
  - SHOCK [None]
  - UNRESPONSIVE TO STIMULI [None]
